FAERS Safety Report 7077859-5 (Version None)
Quarter: 2010Q4

REPORT INFORMATION
  Report Type: 
  Country: None (occurrence: None)
  Receive Date: 20101101
  Receipt Date: 20101019
  Transmission Date: 20110411
  Serious: No
  Sender: FDA-Public Use
  Company Number: CA-ELI_LILLY_AND_COMPANY-CA201010004193

PATIENT
  Sex: Male
  Weight: 88.435 kg

DRUGS (12)
  1. ZYPREXA [Suspect]
     Indication: DEPRESSION
     Dosage: 2.5 MG, 2/D
     Dates: start: 19991106
  2. ZYPREXA [Suspect]
     Dosage: 5 MG, UNK
  3. ZYPREXA [Suspect]
     Dosage: 10 MG, UNK
  4. TRAZODONE [Concomitant]
     Dosage: 50 MG, EACH EVENING
  5. EFFEXOR [Concomitant]
     Dosage: 75 MG, DAILY (1/D)
  6. CODEINE PHOSPHATE [Concomitant]
  7. SERAX [Concomitant]
     Dosage: 30 MG HS, WHEN NEEDED
  8. REPAGLINIDE [Concomitant]
     Dosage: 2 MG, 3/D
  9. VENLAFAXINE [Concomitant]
     Dosage: 150 MG, 2/D
     Route: 048
  10. CELEBREX [Concomitant]
     Dosage: 200 MG, UNK
  11. OXYCODONE HCL AND ACETAMINOPHEN [Concomitant]
  12. ANTIBIOTICS [Concomitant]

REACTIONS (6)
  - BLOOD CHOLESTEROL INCREASED [None]
  - BLOOD TRIGLYCERIDES INCREASED [None]
  - DIABETES MELLITUS [None]
  - HIGH DENSITY LIPOPROTEIN DECREASED [None]
  - PLATELET COUNT INCREASED [None]
  - RED BLOOD CELL COUNT DECREASED [None]
